FAERS Safety Report 5188954-X (Version None)
Quarter: 2006Q4

REPORT INFORMATION
  Report Type: 
  Country: None (occurrence: None)
  Receive Date: 20061215
  Receipt Date: 20061204
  Transmission Date: 20070319
  Serious: Yes (Other)
  Sender: FDA-Public Use
  Company Number: 2005132311

PATIENT
  Age: 48 Year
  Sex: Female

DRUGS (11)
  1. NEURONTIN [Suspect]
     Indication: DIABETIC NEUROPATHY
     Dates: start: 19990101
  2. NEURONTIN [Suspect]
     Indication: NEUROPATHY PERIPHERAL
     Dates: start: 19990101
  3. NEURONTIN [Suspect]
     Indication: RESTLESS LEGS SYNDROME
     Dates: start: 19990101
  4. XANAX [Suspect]
  5. ALCOHOL (ETHANOL) [Suspect]
  6. ATENOLOL [Concomitant]
  7. PREMARIN [Concomitant]
  8. INSULIN [Concomitant]
  9. COZAAR [Concomitant]
  10. PAXIL [Concomitant]
  11. ZOCOR [Concomitant]

REACTIONS (8)
  - BLOOD GLUCOSE INCREASED [None]
  - DRUG INEFFECTIVE [None]
  - OVERDOSE [None]
  - RESPIRATORY DEPRESSION [None]
  - SOMNOLENCE [None]
  - SUICIDAL BEHAVIOUR [None]
  - SUICIDE ATTEMPT [None]
  - TREATMENT NONCOMPLIANCE [None]
